FAERS Safety Report 5942678-7 (Version None)
Quarter: 2008Q4

REPORT INFORMATION
  Report Type: 
  Country: None (occurrence: None)
  Receive Date: 20081106
  Receipt Date: 20080717
  Transmission Date: 20090506
  Serious: Yes (Death, Hospitalization, Other)
  Sender: FDA-Public Use
  Company Number: DE-RANBAXY-2008US-19090

PATIENT

DRUGS (9)
  1. INIPOMP [Suspect]
     Indication: DRUG USE FOR UNKNOWN INDICATION
     Dosage: 20 MG, QD
     Route: 048
  2. OFLOXACINE ALMUS 200MG COMPRIME PELLICULE SECABLE [Suspect]
     Indication: DIABETIC FOOT
     Dosage: UNK
     Dates: end: 20080206
  3. AMOXICILLIN + CLAVULANATE POTASSIUM [Suspect]
     Indication: DIABETIC FOOT
     Dosage: UNK
     Dates: end: 20080206
  4. CLOXACILLIN [Suspect]
     Indication: DIABETIC FOOT
     Dosage: UNK
     Dates: start: 20080112, end: 20080122
  5. CEFTAZIDIME [Suspect]
     Indication: ANGINA PECTORIS
     Dosage: 10 MG, QD
     Route: 062
     Dates: end: 20080516
  6. DIAMICRON [Suspect]
     Indication: DIABETES MELLITUS
     Dosage: 80 MG, QD
     Route: 048
     Dates: end: 20080305
  7. FORTUM [Suspect]
     Indication: DIABETIC FOOT
     Dosage: 4 G, UNK
     Dates: start: 20080206, end: 20080304
  8. CIPROFLOXACIN HYDROCHLORIDE [Suspect]
     Indication: DIABETIC FOOT
     Dosage: 400 MG, UNK
     Route: 048
     Dates: start: 20080206, end: 20080304
  9. LASIX [Suspect]
     Indication: DRUG USE FOR UNKNOWN INDICATION
     Dosage: 40 MG, QD
     Route: 048

REACTIONS (6)
  - CHOLESTATIC LIVER INJURY [None]
  - HAEMORRHAGIC DISORDER [None]
  - HEPATIC FAILURE [None]
  - MYOCARDIAL INFARCTION [None]
  - RENAL FAILURE ACUTE [None]
  - VITAMIN K DEFICIENCY [None]
